FAERS Safety Report 6671234-0 (Version None)
Quarter: 2010Q2

REPORT INFORMATION
  Report Type: 
  Country: None (occurrence: None)
  Receive Date: 20100407
  Receipt Date: 20100330
  Transmission Date: 20101027
  Serious: Yes (Other)
  Sender: FDA-Public Use
  Company Number: US-ROCHE-665560

PATIENT
  Sex: Female

DRUGS (2)
  1. ISOTRETINOIN [Suspect]
     Indication: DRUG USE FOR UNKNOWN INDICATION
     Dosage: THE PATIENT WAS DISPENSED ISOTRETINOIN 40 MG ON 3 JUN 09, 2 JUL 09, 30, JUL 09,01 SEP 2009
     Route: 065
  2. CLARAVIS [Suspect]
     Indication: DRUG USE FOR UNKNOWN INDICATION
     Dosage: THE PATIENT WAS DISPENSED ISOTRETINOIN 30 MG ON 2 FEB 10. 2 MAR 10 AND 30 DEC 2009
     Route: 065

REACTIONS (2)
  - APPENDICECTOMY [None]
  - MOOD SWINGS [None]
